FAERS Safety Report 13924267 (Version 2)
Quarter: 2017Q3

REPORT INFORMATION
  Report Type: Report from Study
  Country: IN (occurrence: IN)
  Receive Date: 20170831
  Receipt Date: 20170907
  Transmission Date: 20171127
  Serious: Yes (Hospitalization, Other)
  Sender: FDA-Public Use
  Company Number: IN-ROCHE-1962712

PATIENT
  Age: 54 Year
  Sex: Female
  Weight: 68 kg

DRUGS (19)
  1. TRAMADOL/ACETAMINOPHEN [Concomitant]
     Active Substance: ACETAMINOPHEN\TRAMADOL
     Indication: PAIN
     Dosage: ON SOS
     Route: 048
     Dates: start: 20170119
  2. DYTOR [Concomitant]
     Active Substance: TORSEMIDE
     Indication: BRAIN OEDEMA
  3. TRASTUZUMAB EMTANSINE [Suspect]
     Active Substance: ADO-TRASTUZUMAB EMTANSINE
     Indication: HER-2 POSITIVE BREAST CANCER
     Dosage: DATE OF MOST RECENT DOSE PRIOR TO TONIC-CLONIC SEIZURES: 06/JUL/2017?DATE OF MOST RECENT DOSE (160MG
     Route: 042
     Dates: start: 20170119
  4. HYDROCHLOROTHIAZIDE/OLMESARTAN MEDOXOMIL [Concomitant]
     Active Substance: HYDROCHLOROTHIAZIDE\OLMESARTAN MEDOXOMIL
     Indication: HYPERTENSION
     Route: 048
     Dates: start: 20170119
  5. FORACORT [Concomitant]
     Active Substance: BUDESONIDE\FORMOTEROL FUMARATE
     Indication: ASTHMA
     Dosage: REPSULE 2ML TWO TIMES A DAY
     Dates: start: 20170119
  6. CREMAFFIN [Concomitant]
     Indication: CONSTIPATION
     Dosage: 2TSF PER DAY
     Route: 048
     Dates: start: 20170119, end: 20170821
  7. SIGNOFLAM [Concomitant]
     Indication: PAIN
     Route: 048
     Dates: start: 20170810, end: 20170821
  8. GENTIAN VIOLET [Concomitant]
     Active Substance: GENTIAN VIOLET
     Route: 065
     Dates: start: 20170810, end: 20170821
  9. POTKLOR [Concomitant]
     Indication: ELECTROLYTE IMBALANCE
     Dosage: DOSE: 2 TSF
     Route: 048
     Dates: start: 20170821, end: 20170825
  10. MEGASTY [Concomitant]
     Indication: HORMONE REPLACEMENT THERAPY
     Dosage: 160 MG TWICE A DAY
     Route: 048
     Dates: start: 20170302, end: 20170821
  11. NEXPRO RD [Concomitant]
     Route: 048
     Dates: start: 20170119
  12. UDILIV [Concomitant]
     Dosage: 900MG PER DAY
     Route: 048
     Dates: start: 20170119, end: 20170821
  13. LEVOCET [Concomitant]
     Active Substance: LEVOCETIRIZINE DIHYDROCHLORIDE
     Indication: ASTHMA
     Route: 048
     Dates: start: 20170810, end: 20170821
  14. TRANEXA [Concomitant]
     Indication: EPISTAXIS
     Dosage: 500MG ON SOS
     Route: 048
     Dates: start: 20170706, end: 20170821
  15. NEUROBION FORTE [Concomitant]
     Active Substance: CYANOCOBALAMIN\PYRIDOXINE HYDROCHLORIDE\THIAMINE DISULFIDE
     Indication: VITAMIN B COMPLEX DEFICIENCY
     Route: 048
     Dates: start: 20170119
  16. BECOSULES (INDIA) [Concomitant]
     Route: 048
     Dates: start: 20170119, end: 20170821
  17. DYTOR [Concomitant]
     Active Substance: TORSEMIDE
     Indication: HYPERTENSION
     Route: 048
     Dates: start: 20170821
  18. DEXONA (DEXAMETHASONE) [Concomitant]
     Indication: ASTHMA
     Route: 048
     Dates: start: 20170821
  19. DUOLIN [Concomitant]
     Indication: ASTHMA
     Dosage: ON SOS?REPSULE 2.5ML ON SOS
     Dates: start: 20170109

REACTIONS (2)
  - Generalised tonic-clonic seizure [Recovered/Resolved]
  - Seizure [Recovered/Resolved]

NARRATIVE: CASE EVENT DATE: 20170707
